FAERS Safety Report 6613658-3 (Version None)
Quarter: 2010Q1

REPORT INFORMATION
  Report Type: 
  Country: None (occurrence: None)
  Receive Date: 20100225
  Receipt Date: 20100210
  Transmission Date: 20100710
  Serious: Yes (Hospitalization)
  Sender: FDA-Public Use
  Company Number: 2010000527

PATIENT
  Sex: Male
  Weight: 70 kg

DRUGS (2)
  1. ERLOTINIB (ERLOTINIB) (TABLET) (ERLOTINIB) [Suspect]
     Indication: PANCREATIC CARCINOMA
     Dosage: (150 MG, QD), ORAL
     Route: 048
     Dates: start: 20100107, end: 20100127
  2. SORAFENIB [Suspect]
     Indication: PANCREATIC CARCINOMA
     Dosage: (400 MG, QD), ORAL
     Route: 048
     Dates: start: 20100107, end: 20100127

REACTIONS (4)
  - CONFUSIONAL STATE [None]
  - CONSTIPATION [None]
  - DEHYDRATION [None]
  - PAIN [None]
